FAERS Safety Report 17201582 (Version 1)
Quarter: 2019Q4

REPORT INFORMATION
  Report Type: Spontaneous
  Country: JP (occurrence: JP)
  Receive Date: 20191226
  Receipt Date: 20191226
  Transmission Date: 20200122
  Serious: Yes (Life-Threatening, Hospitalization, Other)
  Sender: FDA-Public Use
  Company Number: JP-MYLANLABS-2019M1125734

PATIENT
  Age: 61 Year
  Sex: Male

DRUGS (4)
  1. ANAEMETRO [Suspect]
     Active Substance: METRONIDAZOLE
     Indication: ENTERITIS INFECTIOUS
     Dosage: 500 MILLIGRAM, TID
     Route: 041
     Dates: start: 20190619, end: 20190701
  2. LEVOFLOXACIN. [Suspect]
     Active Substance: LEVOFLOXACIN
     Indication: ENTERITIS INFECTIOUS
     Dosage: 500 MILLIGRAM, QOD
     Route: 041
     Dates: start: 20190620, end: 20190630
  3. MIDAZOLAM [Concomitant]
     Active Substance: MIDAZOLAM HYDROCHLORIDE
     Indication: SEDATION
     Dosage: UNK
     Route: 065
     Dates: start: 20190617, end: 20190627
  4. FENTANYL. [Concomitant]
     Active Substance: FENTANYL
     Indication: ANALGESIC THERAPY
     Dosage: UNK
     Route: 065
     Dates: start: 20190617

REACTIONS (4)
  - Seizure [Recovered/Resolved]
  - Depressed level of consciousness [Unknown]
  - Hypercapnia [Recovering/Resolving]
  - Respiratory acidosis [Recovered/Resolved]

NARRATIVE: CASE EVENT DATE: 20190627
